FAERS Safety Report 9466030 (Version 2)
Quarter: 2013Q3

REPORT INFORMATION
  Report Type: Report from Study
  Country: US (occurrence: US)
  Receive Date: 20130820
  Receipt Date: 20130823
  Transmission Date: 20140515
  Serious: Yes (Other)
  Sender: FDA-Public Use
  Company Number: US-ROCHE-1262551

PATIENT
  Sex: Female
  Weight: 63.11 kg

DRUGS (1)
  1. XOLAIR [Suspect]
     Indication: URTICARIA
     Route: 058
     Dates: start: 20130805

REACTIONS (3)
  - Impaired gastric emptying [Recovered/Resolved]
  - Influenza [Recovered/Resolved]
  - Malaise [Recovered/Resolved]
